FAERS Safety Report 7036206-5 (Version None)
Quarter: 2010Q4

REPORT INFORMATION
  Report Type: 
  Country: None (occurrence: None)
  Receive Date: 20101008
  Receipt Date: 20101004
  Transmission Date: 20110411
  Serious: Yes (Other)
  Sender: FDA-Public Use
  Company Number: US-SHIONOGI USA, INC-2010000049

PATIENT

DRUGS (13)
  1. NITROLINGUAL PUMPSPRAY [Suspect]
     Indication: ANGINA PECTORIS
     Dosage: UNK
  2. ZESTRIL [Concomitant]
  3. NORVASC [Concomitant]
  4. TOPROL-XL [Concomitant]
  5. HYDROCHLOROTHIAZIDE [Concomitant]
  6. PLAVIX [Concomitant]
  7. ASPIRIN [Concomitant]
  8. GABAPENTIN [Concomitant]
  9. BENADRYL [Concomitant]
  10. LEXAPRO [Concomitant]
  11. CRESTOR [Concomitant]
  12. FLOMAX [Concomitant]
  13. AVODART [Concomitant]

REACTIONS (2)
  - CHEST PAIN [None]
  - LOSS OF CONSCIOUSNESS [None]
